FAERS Safety Report 10431388 (Version 2)
Quarter: 2014Q3

REPORT INFORMATION
  Report Type: Spontaneous
  Country: US (occurrence: US)
  Receive Date: 20140904
  Receipt Date: 20140908
  Transmission Date: 20150326
  Serious: Yes (Other)
  Sender: FDA-Public Use
  Company Number: US-GLAXOSMITHKLINE-A1087027A

PATIENT
  Sex: Female

DRUGS (7)
  1. COREG CR [Suspect]
     Active Substance: CARVEDILOL PHOSPHATE
     Indication: ATRIAL FIBRILLATION
     Dosage: 10MG TWICE PER DAY
     Route: 048
     Dates: start: 2004
  2. DIGOXIN. [Suspect]
     Active Substance: DIGOXIN
     Indication: ATRIAL FIBRILLATION
     Dosage: .125MG AT NIGHT
     Route: 065
     Dates: start: 2012
  3. CARVEDILOL. [Suspect]
     Active Substance: CARVEDILOL
     Indication: ATRIAL FIBRILLATION
     Dosage: 1TAB TWICE PER DAY
     Route: 048
     Dates: start: 2009
  4. FISH OIL CAPSULES [Concomitant]
  5. TURMERIC [Concomitant]
     Active Substance: TURMERIC
  6. PACERONE [Suspect]
     Active Substance: AMIODARONE HYDROCHLORIDE
     Indication: PRODUCT USED FOR UNKNOWN INDICATION
     Dates: start: 2010
  7. GINGER. [Concomitant]
     Active Substance: GINGER

REACTIONS (11)
  - Blood pressure decreased [Recovering/Resolving]
  - Pertussis [Recovering/Resolving]
  - Heart rate decreased [Recovering/Resolving]
  - Drug ineffective [Recovering/Resolving]
  - Burning sensation [Recovering/Resolving]
  - Cardiac pacemaker insertion [Not Recovered/Not Resolved]
  - Dyspnoea [Recovering/Resolving]
  - Cardiomyopathy [Not Recovered/Not Resolved]
  - Mobility decreased [Not Recovered/Not Resolved]
  - Heart rate increased [Unknown]
  - Heart valve incompetence [Not Recovered/Not Resolved]

NARRATIVE: CASE EVENT DATE: 2004
